FAERS Safety Report 13670696 (Version 1)
Quarter: 2017Q2

REPORT INFORMATION
  Report Type: Report from Study
  Country: IL (occurrence: IL)
  Receive Date: 20170620
  Receipt Date: 20170620
  Transmission Date: 20170830
  Serious: Yes (Death, Hospitalization)
  Sender: FDA-Public Use
  Company Number: IL-BAYER-2014-010889

PATIENT
  Age: 49 Year
  Sex: Male

DRUGS (8)
  1. GLUCOPHAGE [Concomitant]
     Active Substance: METFORMIN HYDROCHLORIDE
  2. BETAFERON [Suspect]
     Active Substance: INTERFERON BETA-1B
     Indication: MULTIPLE SCLEROSIS
     Dosage: UNK
     Dates: start: 20130826
  3. TICAGRELOR [Concomitant]
     Active Substance: TICAGRELOR
  4. GLIBETIC [Concomitant]
  5. OMEPRADEX [Concomitant]
     Active Substance: OMEPRAZOLE
  6. NORMITEN [Concomitant]
     Active Substance: ATENOLOL
  7. TEVAPIRIN [Concomitant]
  8. OMNIC [Concomitant]
     Active Substance: TAMSULOSIN HYDROCHLORIDE

REACTIONS (2)
  - Myocardial infarction [Recovered/Resolved]
  - Death [Fatal]

NARRATIVE: CASE EVENT DATE: 20140121
